FAERS Safety Report 8135315-7 (Version None)
Quarter: 2012Q1

REPORT INFORMATION
  Report Type: 
  Country: None (occurrence: None)
  Receive Date: 20120214
  Receipt Date: 20120206
  Transmission Date: 20120608
  Serious: Yes (Other)
  Sender: FDA-Public Use
  Company Number: GR-CUBIST-2012S1000128

PATIENT
  Age: 56 Day
  Sex: Female

DRUGS (4)
  1. CUBICIN [Suspect]
     Indication: ENTEROCOCCAL INFECTION
     Route: 042
  2. CUBICIN [Suspect]
     Route: 042
  3. CUBICIN [Suspect]
     Route: 042
  4. LINEZOLID [Concomitant]
     Indication: PRODUCT USED FOR UNKNOWN INDICATION
     Dosage: DOSE UNIT:U UNKNOWN
     Route: 065

REACTIONS (2)
  - ENDOCARDITIS [None]
  - CHOLESTASIS [None]
